FAERS Safety Report 4554257-7 (Version None)
Quarter: 2004Q4

REPORT INFORMATION
  Report Type: 
  Country: None (occurrence: None)
  Receive Date: 20041222
  Receipt Date: 20040914
  Transmission Date: 20050328
  Serious: No
  Sender: FDA-Public Use
  Company Number: 209057

PATIENT
  Age: 81 Year
  Sex: Male

DRUGS (6)
  1. AVASTIN [Suspect]
     Indication: COLON CANCER METASTATIC
     Dosage: 400 MG, Q2W, INTRAVENOUS
     Route: 042
     Dates: start: 20040727
  2. CPT-11 (IRINOTECAN HYDROCHLORIDE) [Concomitant]
  3. FLUOROURACIL [Concomitant]
  4. LEUCOVORIN CALCIUM [Concomitant]
  5. ANZEMET [Concomitant]
  6. DEXAMETHASON (DEXAMETHASONE) [Concomitant]

REACTIONS (1)
  - HAEMATURIA [None]
